FAERS Safety Report 15104727 (Version 1)
Quarter: 2018Q3

REPORT INFORMATION
  Report Type: Spontaneous
  Country: US (occurrence: US)
  Receive Date: 20180703
  Receipt Date: 20180703
  Transmission Date: 20181010
  Serious: No
  Sender: FDA-Public Use
  Company Number: US-BAUSCH-BL-2018-011834

PATIENT
  Sex: Female

DRUGS (2)
  1. BESIVANCE [Suspect]
     Active Substance: BESIFLOXACIN
     Indication: PREOPERATIVE CARE
     Route: 047
     Dates: start: 201803
  2. PROLENSA [Suspect]
     Active Substance: BROMFENAC SODIUM
     Indication: PREOPERATIVE CARE
     Route: 047
     Dates: start: 201803

REACTIONS (3)
  - Off label use [Unknown]
  - Ear discomfort [Not Recovered/Not Resolved]
  - Ear disorder [Not Recovered/Not Resolved]

NARRATIVE: CASE EVENT DATE: 2018
